FAERS Safety Report 11884814 (Version 1)
Quarter: 2015Q4

REPORT INFORMATION
  Report Type: Spontaneous
  Country: US (occurrence: None)
  Receive Date: 20151231
  Receipt Date: 20151231
  Transmission Date: 20160305
  Serious: Yes (Disabling)
  Sender: FDA-Public Use
  Company Number: None

PATIENT
  Age: 50 Year
  Sex: Female
  Weight: 49.9 kg

DRUGS (1)
  1. CIPRO [Suspect]
     Active Substance: CIPROFLOXACIN HYDROCHLORIDE
     Indication: APPENDICITIS PERFORATED
     Dates: start: 20121217, end: 20130107

REACTIONS (3)
  - Mobility decreased [None]
  - Musculoskeletal pain [None]
  - Sleep disorder [None]

NARRATIVE: CASE EVENT DATE: 20121217
